FAERS Safety Report 12136814 (Version 1)
Quarter: 2016Q1

REPORT INFORMATION
  Report Type: Spontaneous
  Country: US (occurrence: US)
  Receive Date: 20160302
  Receipt Date: 20160302
  Transmission Date: 20160526
  Serious: Yes (Other)
  Sender: FDA-Public Use
  Company Number: US-NOVOPROD-481887

PATIENT
  Age: 63 Year
  Sex: Female

DRUGS (3)
  1. LANTUS [Concomitant]
     Active Substance: INSULIN GLARGINE
     Indication: TYPE 2 DIABETES MELLITUS
     Dosage: UNK
     Dates: start: 201309
  2. NOVOLOG [Suspect]
     Active Substance: INSULIN ASPART
     Indication: TYPE 2 DIABETES MELLITUS
     Dosage: 18 U, QD IN THE AM AND 22 U, QD IN THE AFTERNOON AND EVENING
     Route: 058
     Dates: start: 201309, end: 201406
  3. NOVOLOG [Suspect]
     Active Substance: INSULIN ASPART
     Dosage: 18 U, QD IN THE AM AND 22 U, QD IN THE AFTERNOON AND EVENING
     Route: 058
     Dates: start: 201511

REACTIONS (3)
  - Injection site bruising [Not Recovered/Not Resolved]
  - Injection site haemorrhage [Not Recovered/Not Resolved]
  - Myasthenia gravis [Not Recovered/Not Resolved]

NARRATIVE: CASE EVENT DATE: 201309
